FAERS Safety Report 8800196 (Version 1)
Quarter: 2012Q4

REPORT INFORMATION
  Report Type: 
  Country: US (occurrence: US)
  Receive Date: 20120921
  Receipt Date: 20120921
  Transmission Date: 20130627
  Serious: No
  Sender: FDA-Public Use
  Company Number: US-009507513-1208USA007633

PATIENT
  Sex: Female

DRUGS (3)
  1. PEGINTRON [Suspect]
     Dosage: UNK
     Dates: start: 20120315
  2. REBETOL [Suspect]
     Indication: HEPATITIS C
     Dosage: UNK
     Dates: start: 20120315
  3. VICTRELIS [Suspect]
     Indication: HEPATITIS C
     Dosage: UNK
     Dates: start: 20120419

REACTIONS (3)
  - Dysgeusia [Unknown]
  - Chest pain [Unknown]
  - Abdominal pain upper [Unknown]
